FAERS Safety Report 7772345-9 (Version None)
Quarter: 2011Q3

REPORT INFORMATION
  Report Type: 
  Country: None (occurrence: None)
  Receive Date: 20110922
  Receipt Date: 20110113
  Transmission Date: 20111222
  Serious: No
  Sender: FDA-Public Use
  Company Number: US-ASTRAZENECA-2011SE02455

PATIENT
  Age: 42 Year
  Sex: Female
  Weight: 91.6 kg

DRUGS (27)
  1. DEPAKOTE [Concomitant]
     Route: 065
     Dates: start: 20050509
  2. RISPERDAL [Concomitant]
     Route: 065
     Dates: start: 20050509
  3. ZYPREXA [Concomitant]
     Route: 065
     Dates: start: 20050509
  4. CONCERTA [Concomitant]
     Route: 065
     Dates: start: 20050509
  5. MUCINEX DM [Concomitant]
     Indication: COUGH
     Dosage: 600-30 MG , 1 TABLET TWICE DAILY AS NEEDED FOR COUGH
     Dates: start: 20060101
  6. NITROSTAT [Concomitant]
     Indication: CHEST PAIN
     Dosage: ONE ABLET UNDER TONGUE AS NEEDED FOR CHEST PAIN.
     Dates: start: 20060101
  7. ZOCOR [Concomitant]
     Route: 048
     Dates: start: 20060101
  8. METFORMIN HCL [Concomitant]
     Dosage: 500 MG, TAKE ONE TABLET 30^ BEFOR B' FAST EVERYDAY
     Dates: start: 20060101
  9. REMERON [Concomitant]
     Route: 065
     Dates: start: 20050509
  10. TOPROL-XL [Concomitant]
     Dates: start: 20060101
  11. NAPROSYN [Concomitant]
     Dates: start: 20060101
  12. COGENTIN [Concomitant]
     Route: 065
     Dates: start: 20050509
  13. PAXIL [Concomitant]
     Route: 065
     Dates: start: 20050509
  14. ADDERALL 5 [Concomitant]
     Route: 065
     Dates: start: 20050509
  15. TAVIST ND [Concomitant]
     Dates: start: 20060101
  16. HYDROCHLOROTHIAZIDE [Concomitant]
     Route: 048
     Dates: start: 20060101
  17. SEROQUEL [Suspect]
     Indication: AFFECTIVE DISORDER
     Dosage: 25 MG TO 100 MG AT NIGHT
     Route: 048
     Dates: start: 20050509
  18. ATARAX [Concomitant]
     Route: 065
     Dates: start: 20050509
  19. CLONIDINE [Concomitant]
     Route: 065
     Dates: start: 20050509
  20. STRATTERA [Concomitant]
     Route: 065
     Dates: start: 20050509
  21. ZITHROMAX [Concomitant]
     Dosage: 500 MG, ONE TABLET DAILY FOR THRE DAYS
     Dates: start: 20060101
  22. PROZAC [Concomitant]
     Route: 065
     Dates: start: 20050509
  23. ZOLOFT [Concomitant]
     Route: 065
     Dates: start: 20050509
  24. NORVASC [Concomitant]
     Dosage: 10 MG, TAKE 1 TABLET/ CAPSULE BY MOUTH DAILY
     Route: 048
     Dates: start: 20060101
  25. HALDOL [Concomitant]
     Route: 065
     Dates: start: 20050509
  26. POTASSIUM CHLORIDE [Concomitant]
     Route: 048
     Dates: start: 20060101
  27. ASPIRIN [Concomitant]
     Route: 048
     Dates: start: 20060101

REACTIONS (6)
  - DIARRHOEA [None]
  - HYPERLIPIDAEMIA [None]
  - ABDOMINAL DISCOMFORT [None]
  - HYPERTENSION [None]
  - DEPRESSION [None]
  - TYPE 2 DIABETES MELLITUS [None]
